FAERS Safety Report 6717417-2 (Version None)
Quarter: 2010Q2

REPORT INFORMATION
  Report Type: 
  Country: None (occurrence: None)
  Receive Date: 20100510
  Receipt Date: 20100507
  Transmission Date: 20101027
  Serious: Yes (Other)
  Sender: FDA-Public Use
  Company Number: RU-ROCHE-661387

PATIENT
  Age: 31 Month
  Sex: Male

DRUGS (2)
  1. TAMIFLU [Suspect]
     Dosage: 75 MG- 1/2 OF CAPSULE TWICE A DAY
     Route: 048
     Dates: start: 20091007, end: 20091009
  2. SUMAMED [Concomitant]
     Route: 048
     Dates: start: 20091007

REACTIONS (5)
  - ABNORMAL BEHAVIOUR [None]
  - CONJUNCTIVITIS [None]
  - COUGH [None]
  - STRIDOR [None]
  - VOMITING [None]
